FAERS Safety Report 4854528-0 (Version None)
Quarter: 2005Q4

REPORT INFORMATION
  Report Type: 
  Country: None (occurrence: None)
  Receive Date: 20051213
  Receipt Date: 20051130
  Transmission Date: 20060501
  Serious: Yes (Life-Threatening)
  Sender: FDA-Public Use
  Company Number: 2005144445

PATIENT
  Age: 62 Year
  Sex: Female
  Weight: 42 kg

DRUGS (6)
  1. FRAGMIN [Suspect]
     Indication: HAEMODIALYSIS
     Dosage: 1300 IU (1300 IU, 1 IN 1 D)
     Dates: start: 20051005, end: 20051019
  2. ALL OTHER NON-THERAPEUTIC PRODUCTS (ALL OTHER NON-THERAPEUTIC PRODUCTS [Suspect]
     Indication: ILL-DEFINED DISORDER
  3. LASIX [Concomitant]
  4. BLOPRESS (CANDESARTAN CILEXETIL) [Concomitant]
  5. ALFAROL (ALFACALCIDOL) [Concomitant]
  6. CALTAN (CALCIUM CARBONATE) [Concomitant]

REACTIONS (3)
  - ANAPHYLACTIC SHOCK [None]
  - BLOOD PRESSURE DIASTOLIC INCREASED [None]
  - CONJUNCTIVAL HYPERAEMIA [None]
